FAERS Safety Report 5586184-0 (Version None)
Quarter: 2008Q1

REPORT INFORMATION
  Report Type: 
  Country: None (occurrence: None)
  Receive Date: 20080104
  Receipt Date: 20080102
  Transmission Date: 20080703
  Serious: Yes (Other)
  Sender: FDA-Public Use
  Company Number: 2007BI011074

PATIENT
  Age: 43 Year
  Sex: Male

DRUGS (5)
  1. TYSABRI [Suspect]
     Indication: MULTIPLE SCLEROSIS
     Dosage: 300 MG; QM; IV; 300 MG; QM; IV
     Route: 042
     Dates: start: 20061026, end: 20070301
  2. TYSABRI [Suspect]
     Indication: MULTIPLE SCLEROSIS
     Dosage: 300 MG; QM; IV; 300 MG; QM; IV
     Route: 042
     Dates: start: 20070901, end: 20071001
  3. SPIRULINA [Concomitant]
  4. VITAMIN CAP [Concomitant]
  5. PREDNISONE TAB [Concomitant]

REACTIONS (9)
  - CERULOPLASMIN INCREASED [None]
  - FALL [None]
  - HEPATITIS [None]
  - LIVER DISORDER [None]
  - LIVER INJURY [None]
  - NEPHROLITHIASIS [None]
  - SERUM FERRITIN INCREASED [None]
  - THERAPEUTIC RESPONSE DECREASED [None]
  - WEIGHT DECREASED [None]
